FAERS Safety Report 7771265-3 (Version None)
Quarter: 2011Q3

REPORT INFORMATION
  Report Type: 
  Country: None (occurrence: None)
  Receive Date: 20110922
  Receipt Date: 20110908
  Transmission Date: 20111222
  Serious: Yes (Hospitalization, Other)
  Sender: FDA-Public Use
  Company Number: US-JNJFOC-20110904441

PATIENT
  Sex: Male

DRUGS (6)
  1. DEPAKOTE [Concomitant]
     Dosage: 500 MG IN AM AND 750 MG IN PM
     Route: 065
  2. LITHIUM CARBONATE [Concomitant]
     Dosage: 300 MG IN PM
     Route: 065
  3. RISPERDAL [Suspect]
     Indication: SCHIZOPHRENIA, PARANOID TYPE
     Dosage: 1MG IN AM AND 1 MG IN PM; TAKEN OFF MEDICATION FOR 2 WEEKS
     Route: 048
  4. COGENTIN [Concomitant]
     Indication: COGWHEEL RIGIDITY
     Route: 065
  5. RISPERDAL [Suspect]
     Indication: SCHIZOPHRENIA, PARANOID TYPE
     Route: 048
  6. RISPERDAL [Suspect]
     Dosage: 1MG IN AM AND 1 MG IN PM; TAKEN OFF MEDICATION FOR 2 WEEKS
     Route: 048

REACTIONS (6)
  - RENAL FAILURE [None]
  - HOSPITALISATION [None]
  - DELIRIUM [None]
  - INCORRECT DOSE ADMINISTERED [None]
  - PNEUMONIA [None]
  - INADEQUATE DIET [None]
